FAERS Safety Report 7079946-4 (Version None)
Quarter: 2010Q4

REPORT INFORMATION
  Report Type: 
  Country: None (occurrence: None)
  Receive Date: 20101102
  Receipt Date: 20101020
  Transmission Date: 20110411
  Serious: Yes (Death, Other)
  Sender: FDA-Public Use
  Company Number: DE-GENENTECH-307917

PATIENT
  Sex: Female

DRUGS (2)
  1. RITUXIMAB [Suspect]
     Indication: B-CELL LYMPHOMA
     Dosage: 630 MG, UNK
     Route: 042
     Dates: start: 20071015
  2. RITUXIMAB [Suspect]
     Dosage: 690 MG, UNK
     Route: 042
     Dates: end: 20080421

REACTIONS (5)
  - ACUTE MYOCARDIAL INFARCTION [None]
  - CELLULITIS [None]
  - LEFT VENTRICULAR FAILURE [None]
  - MULTI-ORGAN FAILURE [None]
  - SEPSIS [None]
